FAERS Safety Report 21300396 (Version 1)
Quarter: 2022Q3

REPORT INFORMATION
  Report Type: Spontaneous
  Country: JP (occurrence: JP)
  Receive Date: 20220907
  Receipt Date: 20220907
  Transmission Date: 20221027
  Serious: Yes (Other)
  Sender: FDA-Public Use
  Company Number: JP-ONO-2022JP024485

PATIENT

DRUGS (1)
  1. OPDIVO [Suspect]
     Active Substance: NIVOLUMAB
     Indication: Oesophageal carcinoma
     Dosage: UNK
     Route: 041

REACTIONS (5)
  - Dyspnoea [Unknown]
  - Lung opacity [Unknown]
  - Radiation pneumonitis [Unknown]
  - Interstitial lung disease [Unknown]
  - Condition aggravated [Unknown]
